FAERS Safety Report 19093860 (Version 1)
Quarter: 2021Q2

REPORT INFORMATION
  Report Type: Spontaneous
  Country: IT (occurrence: IT)
  Receive Date: 20210405
  Receipt Date: 20210405
  Transmission Date: 20210717
  Serious: Yes (Other)
  Sender: FDA-Public Use
  Company Number: IT-ELI_LILLY_AND_COMPANY-IT202103013175

PATIENT
  Age: 74 Year
  Sex: Female
  Weight: 77 kg

DRUGS (2)
  1. PACLITAXEL. [Suspect]
     Active Substance: PACLITAXEL
     Indication: GASTRIC CANCER
     Dosage: 100 MG, CYCLICAL
     Route: 042
     Dates: start: 20200930
  2. CYRAMZA [Suspect]
     Active Substance: RAMUCIRUMAB
     Indication: GASTRIC CANCER
     Dosage: 616 MG, CYCLICAL
     Route: 042
     Dates: start: 20200930

REACTIONS (4)
  - Dysaesthesia [Unknown]
  - Neuropathy peripheral [Unknown]
  - Asthenia [Unknown]
  - Thrombocytopenia [Unknown]

NARRATIVE: CASE EVENT DATE: 20210316
